FAERS Safety Report 7517438-6 (Version None)
Quarter: 2011Q2

REPORT INFORMATION
  Report Type: 
  Country: None (occurrence: None)
  Receive Date: 20110601
  Receipt Date: 20110525
  Transmission Date: 20111010
  Serious: Yes (Hospitalization, Other)
  Sender: FDA-Public Use
  Company Number: JP-PFIZER INC-2011098022

PATIENT
  Age: 68 Year
  Sex: Male

DRUGS (6)
  1. PRERAN [Concomitant]
     Dosage: UNK
     Route: 048
     Dates: start: 20101201, end: 20110501
  2. ASPIRIN [Concomitant]
     Dosage: UNK
     Route: 048
     Dates: start: 20101201, end: 20110501
  3. LIPITOR [Suspect]
     Dosage: 10 MG, 1X/DAY
     Route: 048
     Dates: start: 20101201
  4. LANSOPRAZOLE [Concomitant]
     Dosage: UNK
     Route: 048
     Dates: start: 20110301, end: 20110401
  5. PLAVIX [Concomitant]
     Dosage: UNK
     Route: 048
     Dates: start: 20101201, end: 20110501
  6. CARVEDILOL [Concomitant]
     Dosage: UNK
     Route: 048
     Dates: start: 20101201, end: 20110501

REACTIONS (1)
  - PLATELET COUNT DECREASED [None]
